FAERS Safety Report 9289434 (Version 1)
Quarter: 2013Q2

REPORT INFORMATION
  Report Type: Spontaneous
  Country: SK (occurrence: SK)
  Receive Date: 20130514
  Receipt Date: 20130514
  Transmission Date: 20140414
  Serious: Yes (Other)
  Sender: FDA-Public Use
  Company Number: SK-MYLANLABS-2013S1009646

PATIENT
  Age: 25 Year
  Sex: Female

DRUGS (6)
  1. AZATHIOPRINE [Suspect]
     Indication: TAKAYASU^S ARTERITIS
     Dosage: 50 MG/DAY
     Route: 065
  2. CICLOSPORIN [Suspect]
     Indication: TAKAYASU^S ARTERITIS
     Dosage: 2 MG/KG
     Route: 065
  3. METHOTREXATE [Suspect]
     Indication: TAKAYASU^S ARTERITIS
     Dosage: 10-15 MG PER WEEK
     Route: 065
  4. SOLUMEDROL [Concomitant]
     Indication: TAKAYASU^S ARTERITIS
     Dosage: PULSE THERAPY
     Route: 065
  5. PREDNISONE [Concomitant]
     Indication: TAKAYASU^S ARTERITIS
     Dosage: 60 MG/DAY
     Route: 048
  6. PREDNISONE [Concomitant]
     Indication: TAKAYASU^S ARTERITIS
     Dosage: 20-40 MG/DAY
     Route: 065

REACTIONS (5)
  - Gastrointestinal disorder [Unknown]
  - Nephropathy toxic [Unknown]
  - Hypertension [Unknown]
  - Hepatic enzyme increased [Unknown]
  - Alopecia [Unknown]
